FAERS Safety Report 23058373 (Version 1)
Quarter: 2023Q4

REPORT INFORMATION
  Report Type: Other
  Country: US (occurrence: None)
  Receive Date: 20231012
  Receipt Date: 20231012
  Transmission Date: 20240110
  Serious: Yes (Other)
  Sender: FDA-Public Use
  Company Number: US-ROCHE-3435590

PATIENT
  Age: 78 Year
  Sex: Female

DRUGS (6)
  1. ALECENSA [Suspect]
     Active Substance: ALECTINIB HYDROCHLORIDE
     Indication: Abdominal distension
     Dosage: TAKE 4 CAPSULE(S) BY MOUTH TWICE A DAY WITH FOOD DO NOT OPEN OR DISSOLVE CONTENTS OF CAPSULE
     Route: 048
  2. ALECENSA [Suspect]
     Active Substance: ALECTINIB HYDROCHLORIDE
     Indication: Swelling
  3. ALECENSA [Suspect]
     Active Substance: ALECTINIB HYDROCHLORIDE
     Indication: Uterine cancer
  4. ALECENSA [Suspect]
     Active Substance: ALECTINIB HYDROCHLORIDE
     Indication: Mass
  5. ALECENSA [Suspect]
     Active Substance: ALECTINIB HYDROCHLORIDE
     Indication: Mass
  6. MUCINEX [Concomitant]
     Active Substance: GUAIFENESIN
     Indication: Hypersensitivity

REACTIONS (2)
  - Malignant neoplasm progression [Unknown]
  - Off label use [Unknown]
